FAERS Safety Report 6765536-7 (Version None)
Quarter: 2010Q2

REPORT INFORMATION
  Report Type: 
  Country: None (occurrence: None)
  Receive Date: 20100610
  Receipt Date: 20100610
  Transmission Date: 20101027
  Serious: No
  Sender: FDA-Public Use
  Company Number: None

PATIENT
  Sex: Female
  Weight: 90.7194 kg

DRUGS (7)
  1. AMLODIPINE [Suspect]
     Indication: HYPERTENSION
     Dosage: 10 MGM QD PO
     Route: 048
     Dates: start: 20070601, end: 20070815
  2. AMLODIPINE [Suspect]
     Indication: HYPERTENSION
     Dosage: 10 MGM QD PO
     Route: 048
     Dates: start: 20100601, end: 20100608
  3. ATENOLOL [Concomitant]
  4. PERCOCET [Concomitant]
  5. SOMA [Concomitant]
  6. RITALIN [Concomitant]
  7. ZOLOFT [Concomitant]

REACTIONS (3)
  - OEDEMA PERIPHERAL [None]
  - PARAESTHESIA [None]
  - PRODUCT SUBSTITUTION ISSUE [None]
